FAERS Safety Report 24678955 (Version 1)
Quarter: 2024Q4

REPORT INFORMATION
  Report Type: Spontaneous
  Country: GB (occurrence: GB)
  Receive Date: 20241129
  Receipt Date: 20241129
  Transmission Date: 20250115
  Serious: Yes (Other)
  Sender: TORRENT PHARMA INC.
  Company Number: None

PATIENT
  Age: 43 Year

DRUGS (7)
  1. MONTELUKAST [Suspect]
     Active Substance: MONTELUKAST
     Indication: Idiopathic urticaria
     Dosage: 10 MG AT NIGHT
     Route: 065
     Dates: start: 20221101, end: 20240918
  2. FEXOFENADINE [Concomitant]
     Active Substance: FEXOFENADINE HYDROCHLORIDE
     Indication: Idiopathic urticaria
     Dosage: UNKNOWN
     Route: 065
  3. FLUOXETINE [Concomitant]
     Active Substance: FLUOXETINE HYDROCHLORIDE
     Indication: Major depression
     Dosage: UNKNOWN
     Route: 065
  4. LANSOPRAZOLE [Concomitant]
     Active Substance: LANSOPRAZOLE
     Indication: Product used for unknown indication
     Dosage: UNKNOWN
     Route: 065
  5. METHYLPHENIDATE [Concomitant]
     Active Substance: METHYLPHENIDATE
     Indication: Attention deficit hyperactivity disorder
     Dosage: UNKNOWN
     Route: 065
     Dates: start: 20230801
  6. PREGABALIN [Concomitant]
     Active Substance: PREGABALIN
     Indication: Fibromyalgia
     Dosage: UNKNOWN
     Route: 065
  7. TOPIRAMATE [Concomitant]
     Active Substance: TOPIRAMATE
     Indication: Vestibular migraine
     Dosage: UNKNOWN
     Route: 065

REACTIONS (5)
  - Nightmare [Recovering/Resolving]
  - Middle insomnia [Recovering/Resolving]
  - Obsessive-compulsive symptom [Not Recovered/Not Resolved]
  - Anxiety [Not Recovered/Not Resolved]
  - Mental disorder [Unknown]

NARRATIVE: CASE EVENT DATE: 20230601
